FAERS Safety Report 11395307 (Version 2)
Quarter: 2015Q3

REPORT INFORMATION
  Report Type: Spontaneous
  Country: US (occurrence: US)
  Receive Date: 20150819
  Receipt Date: 20150826
  Transmission Date: 20151125
  Serious: Yes (Hospitalization, Other)
  Sender: FDA-Public Use
  Company Number: US-ACTELION-A-US2015-122057

PATIENT
  Age: 83 Year
  Sex: Female

DRUGS (3)
  1. OPSUMIT [Suspect]
     Active Substance: MACITENTAN
     Indication: PULMONARY ARTERIAL HYPERTENSION
     Dosage: 10 MG, QD
     Route: 048
     Dates: start: 20140508
  2. RIOCIGUAT [Concomitant]
     Active Substance: RIOCIGUAT
  3. TREPROSTINIL DIOLAMIN [Concomitant]
     Active Substance: TREPROSTINIL DIOLAMINE

REACTIONS (14)
  - Diarrhoea [Unknown]
  - Pain [Unknown]
  - Malaise [Unknown]
  - Asthenia [Unknown]
  - Gastrointestinal obstruction [Unknown]
  - Back pain [Unknown]
  - Gastrointestinal disorder [Unknown]
  - Gastric ulcer [Unknown]
  - Constipation [Unknown]
  - Headache [Unknown]
  - Tremor [Unknown]
  - Abdominal distension [Unknown]
  - Nausea [Unknown]
  - Vomiting [Unknown]

NARRATIVE: CASE EVENT DATE: 20150727
